FAERS Safety Report 6706312-0 (Version None)
Quarter: 2010Q2

REPORT INFORMATION
  Report Type: 
  Country: None (occurrence: None)
  Receive Date: 20100503
  Receipt Date: 20100428
  Transmission Date: 20101027
  Serious: Yes (Death)
  Sender: FDA-Public Use
  Company Number: US-ASTRAZENECA-2010SE19112

PATIENT
  Age: 90 Year
  Sex: Female

DRUGS (13)
  1. SEROQUEL [Suspect]
     Indication: DEPRESSION
     Route: 048
  2. ARICEPT [Concomitant]
  3. PHENYTOIN [Concomitant]
  4. SIMVASTATIN [Concomitant]
  5. LANTUS [Concomitant]
  6. AMLODIPINE [Concomitant]
  7. CATAPRES [Concomitant]
  8. DIGOXIN [Concomitant]
  9. JANUVIA [Concomitant]
  10. LISINOPRIL [Concomitant]
  11. METOPROLOL [Concomitant]
  12. HYDRALAZINE HCL [Concomitant]
  13. NOVOLIN [Concomitant]

REACTIONS (2)
  - DEATH [None]
  - DIABETIC COMPLICATION [None]
